FAERS Safety Report 24170275 (Version 1)
Quarter: 2024Q3

REPORT INFORMATION
  Report Type: Spontaneous
  Country: ES (occurrence: ES)
  Receive Date: 20240803
  Receipt Date: 20240803
  Transmission Date: 20241017
  Serious: Yes (Other)
  Sender: TEVA
  Company Number: None

PATIENT
  Age: 60 Year
  Sex: Male

DRUGS (2)
  1. ENALAPRIL [Interacting]
     Active Substance: ENALAPRIL
     Indication: Hypertension
     Dosage: ENALAPRIL MALEATO (2142MA)
     Route: 048
     Dates: start: 20240430
  2. HYDROCHLOROTHIAZIDE [Interacting]
     Active Substance: HYDROCHLOROTHIAZIDE
     Indication: Hypertension
     Dosage: HIDROCLOROTIAZIDA (1343A)
     Route: 048
     Dates: start: 202307, end: 20240509

REACTIONS (1)
  - Hyponatraemia [Recovered/Resolved]

NARRATIVE: CASE EVENT DATE: 20240507
